FAERS Safety Report 7506044-5 (Version None)
Quarter: 2011Q2

REPORT INFORMATION
  Report Type: 
  Country: None (occurrence: None)
  Receive Date: 20110526
  Receipt Date: 20110517
  Transmission Date: 20111010
  Serious: Yes (Hospitalization)
  Sender: FDA-Public Use
  Company Number: JP-ROCHE-765976

PATIENT
  Sex: Male

DRUGS (27)
  1. MEDROL [Concomitant]
     Route: 048
     Dates: start: 20110201
  2. ACETAMINOPHEN [Concomitant]
     Dosage: PRN
     Route: 048
     Dates: start: 20110305
  3. GANCICLOVIR SODIUM [Suspect]
     Indication: CYTOMEGALOVIRUS INFECTION
     Route: 041
     Dates: start: 20110225, end: 20110306
  4. ARGATROBAN [Suspect]
     Route: 042
     Dates: start: 20110227, end: 20110228
  5. ASPIRIN [Concomitant]
     Route: 048
     Dates: start: 20110123, end: 20110303
  6. LASIX [Concomitant]
     Route: 048
     Dates: start: 20110215
  7. WARFARIN SODIUM [Concomitant]
     Route: 048
     Dates: start: 20110302
  8. ARGATROBAN [Suspect]
     Route: 042
     Dates: start: 20110301, end: 20110305
  9. PLATIBIT [Concomitant]
     Route: 048
     Dates: start: 20110213
  10. ACETAMINOPHEN [Concomitant]
     Dosage: PRN
     Route: 048
     Dates: start: 20110224
  11. IMMUNE GLOBULIN INTRAVENOUS (HUMAN) [Concomitant]
     Route: 041
     Dates: start: 20110302, end: 20110304
  12. NORVASC [Concomitant]
     Route: 048
     Dates: start: 20110304
  13. RABEPRAZOLE SODIUM [Concomitant]
     Route: 048
     Dates: start: 20110117
  14. CARVEDILOL [Concomitant]
     Route: 048
     Dates: start: 20110113
  15. CELLCEPT [Concomitant]
     Route: 048
     Dates: start: 20110302
  16. LAC-B [Concomitant]
     Route: 048
     Dates: start: 20110308
  17. CELLCEPT [Concomitant]
     Route: 048
     Dates: start: 20110224, end: 20110301
  18. ISOSORBIDE DINITRATE [Concomitant]
     Route: 048
     Dates: start: 20110114
  19. CALCIUM CARBONATE [Concomitant]
     Dosage: CALCIUM LACTATE HYDRATE
     Route: 048
     Dates: start: 20110118
  20. TACROLIMUS [Concomitant]
     Route: 048
     Dates: start: 20110308
  21. HANGE-SHASHIN-TO [Concomitant]
     Route: 048
     Dates: start: 20110225, end: 20110314
  22. RADICUT [Suspect]
     Route: 041
     Dates: start: 20110227, end: 20110308
  23. METHYCOBAL [Concomitant]
     Route: 048
     Dates: start: 20110211
  24. TACROLIMUS [Concomitant]
     Dosage: DRUG: GRACEPTOR
     Route: 048
     Dates: start: 20110128, end: 20110304
  25. TACROLIMUS [Concomitant]
     Route: 048
     Dates: start: 20110305, end: 20110307
  26. TEPRENONE [Concomitant]
     Dosage: DRUG: KOBALNON
     Route: 048
     Dates: start: 20110226
  27. HERLAT [Concomitant]
     Dosage: PRN
     Route: 048
     Dates: start: 20110305

REACTIONS (1)
  - NEPHROTIC SYNDROME [None]
